FAERS Safety Report 24206309 (Version 1)
Quarter: 2024Q3

REPORT INFORMATION
  Report Type: Spontaneous
  Country: EG (occurrence: EG)
  Receive Date: 20240813
  Receipt Date: 20240813
  Transmission Date: 20241017
  Serious: Yes (Other)
  Sender: Harrow Health
  Company Number: EG-IMP-2024000583

PATIENT
  Age: 20 Year

DRUGS (1)
  1. VIGAMOX [Suspect]
     Active Substance: MOXIFLOXACIN HYDROCHLORIDE
     Indication: Postoperative care
     Dosage: QID
     Route: 047
     Dates: start: 20240714, end: 20240717

REACTIONS (2)
  - Infection [Recovering/Resolving]
  - Product use in unapproved indication [Unknown]

NARRATIVE: CASE EVENT DATE: 20240716
